FAERS Safety Report 5330836-4 (Version None)
Quarter: 2007Q2

REPORT INFORMATION
  Report Type: 
  Country: None (occurrence: None)
  Receive Date: 20070518
  Receipt Date: 20070518
  Transmission Date: 20071010
  Serious: No
  Sender: FDA-Public Use
  Company Number: None

PATIENT
  Sex: Male

DRUGS (25)
  1. MS CONTIN [Suspect]
     Indication: POST LAMINECTOMY SYNDROME
     Dosage: 60 MG Q12?
     Dates: start: 20070401
  2. LODINE [Concomitant]
  3. TOLECTIN [Concomitant]
  4. RELAFEN [Concomitant]
  5. TORADOL [Concomitant]
  6. NAPROSYN [Concomitant]
  7. FLEXERIL [Concomitant]
  8. SOMA [Concomitant]
  9. SOMA WITH CODIENE [Concomitant]
  10. VICODIN ES [Concomitant]
  11. LORCET-HD [Concomitant]
  12. ANAPROX [Concomitant]
  13. ULTRAM [Concomitant]
  14. DARVOCET [Concomitant]
  15. TEGRETOL [Concomitant]
  16. NEURONTIN [Concomitant]
  17. KLONOPIN [Concomitant]
  18. VALIUM [Concomitant]
  19. OPANA [Concomitant]
  20. PERCOCET [Concomitant]
  21. ELAVIL [Concomitant]
  22. AMBIEN [Concomitant]
  23. OXYCONTIN [Concomitant]
  24. KADIAN [Concomitant]
  25. DURAGESIC-100 [Concomitant]

REACTIONS (4)
  - COLD SWEAT [None]
  - HEADACHE [None]
  - HOT FLUSH [None]
  - NAUSEA [None]
